FAERS Safety Report 5587026-X (Version None)
Quarter: 2008Q1

REPORT INFORMATION
  Report Type: 
  Country: None (occurrence: None)
  Receive Date: 20080110
  Receipt Date: 20080103
  Transmission Date: 20080703
  Serious: Yes (Other)
  Sender: FDA-Public Use
  Company Number: B0359629A

PATIENT
  Age: 37 Year
  Sex: Male

DRUGS (5)
  1. SEROXAT [Suspect]
     Indication: DEPRESSION
     Dosage: 40MG PER DAY
     Route: 065
     Dates: start: 19991117
  2. VENLAFAXINE HCL [Concomitant]
     Route: 065
  3. ALCOHOL [Concomitant]
  4. PROZAC [Concomitant]
     Dates: start: 20001101
  5. EFFEXOR [Concomitant]
     Dates: start: 20010910

REACTIONS (23)
  - AGGRESSION [None]
  - AGITATION [None]
  - AMNESIA [None]
  - ANXIETY [None]
  - BALANCE DISORDER [None]
  - DISTURBANCE IN ATTENTION [None]
  - DIZZINESS [None]
  - ELECTRIC SHOCK [None]
  - HYPERHIDROSIS [None]
  - ILL-DEFINED DISORDER [None]
  - IMPATIENCE [None]
  - INSOMNIA [None]
  - IRRITABILITY [None]
  - NAUSEA [None]
  - NIGHTMARE [None]
  - PARAESTHESIA [None]
  - PARANOIA [None]
  - PARASOMNIA [None]
  - SLEEP DISORDER [None]
  - SOCIAL AVOIDANT BEHAVIOUR [None]
  - SUICIDE ATTEMPT [None]
  - TREMOR [None]
  - WITHDRAWAL SYNDROME [None]
